FAERS Safety Report 20542792 (Version 1)
Quarter: 2022Q1

REPORT INFORMATION
  Report Type: Spontaneous
  Country: NO (occurrence: NO)
  Receive Date: 20220302
  Receipt Date: 20220302
  Transmission Date: 20220423
  Serious: Yes (Other)
  Sender: FDA-Public Use
  Company Number: None

PATIENT
  Age: 37 Year
  Sex: Female
  Weight: 70 kg

DRUGS (2)
  1. AJOVY [Suspect]
     Active Substance: FREMANEZUMAB-VFRM
     Indication: Migraine
     Dosage: STRENGTH  : 225 MG,
     Route: 058
     Dates: start: 2020, end: 2021
  2. MELATONIN [Concomitant]
     Active Substance: MELATONIN
     Dosage: CIRCADIN DEPOTTAB 2 MG

REACTIONS (4)
  - Suicidal ideation [Unknown]
  - Anger [Unknown]
  - Vision blurred [Recovered/Resolved]
  - Depression [Recovered/Resolved]

NARRATIVE: CASE EVENT DATE: 20200101
